FAERS Safety Report 6676356-6 (Version None)
Quarter: 2010Q2

REPORT INFORMATION
  Report Type: 
  Country: None (occurrence: None)
  Receive Date: 20100408
  Receipt Date: 20100402
  Transmission Date: 20101027
  Serious: Yes (Hospitalization)
  Sender: FDA-Public Use
  Company Number: S04-USA-02764-01

PATIENT
  Age: 92 Year
  Sex: Female

DRUGS (4)
  1. NAMENDA [Suspect]
     Indication: DEMENTIA ALZHEIMER'S TYPE
     Dosage: ORAL
     Route: 048
     Dates: start: 20030101
  2. ARICEPT [Concomitant]
  3. OTHER MEDICATIONS (NOS) [Concomitant]
  4. LORAZEPAM [Concomitant]

REACTIONS (3)
  - BLOOD PRESSURE INCREASED [None]
  - HALLUCINATION, VISUAL [None]
  - SYNCOPE [None]
